FAERS Safety Report 5838287-0 (Version None)
Quarter: 2008Q3

REPORT INFORMATION
  Report Type: 
  Country: None (occurrence: None)
  Receive Date: 20080808
  Receipt Date: 20080806
  Transmission Date: 20090109
  Serious: Yes (Hospitalization)
  Sender: FDA-Public Use
  Company Number: DK-BRISTOL-MYERS SQUIBB COMPANY-14291454

PATIENT
  Age: 45 Year
  Sex: Male

DRUGS (4)
  1. PACLITAXEL [Suspect]
     Indication: GERM CELL CANCER
     Dosage: STARTED ON 28MAY08
     Route: 042
     Dates: start: 20080528, end: 20080606
  2. CISPLATIN [Suspect]
     Indication: GERM CELL CANCER
     Dosage: STARTED ON 28MAY08
     Route: 042
     Dates: start: 20080528, end: 20080606
  3. ETOPOSIDE [Suspect]
     Indication: GERM CELL CANCER
     Dosage: STARTED ON 28MAY08
     Route: 042
     Dates: start: 20080528, end: 20080606
  4. BLEOMYCIN SULFATE [Suspect]
     Indication: GERM CELL CANCER
     Dosage: STARTED ON 28MAY08
     Route: 042
     Dates: start: 20080528, end: 20080606

REACTIONS (2)
  - DIARRHOEA HAEMORRHAGIC [None]
  - FEBRILE NEUTROPENIA [None]
